FAERS Safety Report 7340165-5 (Version None)
Quarter: 2011Q1

REPORT INFORMATION
  Report Type: 
  Country: None (occurrence: None)
  Receive Date: 20110309
  Receipt Date: 20110301
  Transmission Date: 20110831
  Serious: Yes (Other)
  Sender: FDA-Public Use
  Company Number: US-PFIZER INC-2011045585

PATIENT
  Sex: Female

DRUGS (3)
  1. TYLENOL W/ CODEINE [Concomitant]
     Indication: PAIN
     Dosage: UNK
     Dates: start: 19990101
  2. PREMPRO [Suspect]
     Indication: HORMONE REPLACEMENT THERAPY
     Dosage: 0.625 MG, PER DAY
     Route: 048
     Dates: start: 19980101, end: 20090101
  3. PREMARIN [Suspect]
     Indication: HORMONE REPLACEMENT THERAPY
     Dosage: 0.625 MG, UNK
     Route: 048
     Dates: start: 19980101, end: 20090101

REACTIONS (1)
  - BREAST CANCER FEMALE [None]
